FAERS Safety Report 8971554 (Version 1)
Quarter: 2012Q4

REPORT INFORMATION
  Report Type: 
  Country: JP (occurrence: JP)
  Receive Date: 20121217
  Receipt Date: 20121217
  Transmission Date: 20130627
  Serious: Yes (Other)
  Sender: FDA-Public Use
  Company Number: JP-009507513-1212JPN005083

PATIENT

DRUGS (4)
  1. FAMOTIDINE [Suspect]
     Indication: GASTRIC HAEMORRHAGE
     Dosage: 20 mg, qd
     Route: 048
  2. ASPIRIN [Concomitant]
     Dosage: 100 mg, qd
  3. CLOPIDOGREL [Concomitant]
     Dosage: 300 mg, UNK
  4. CLOPIDOGREL [Concomitant]
     Dosage: 75 mg, qd

REACTIONS (2)
  - Gastric ulcer haemorrhage [Unknown]
  - Drug ineffective [Unknown]
